FAERS Safety Report 20208215 (Version 2)
Quarter: 2021Q4

REPORT INFORMATION
  Report Type: Spontaneous
  Country: US (occurrence: US)
  Receive Date: 20211220
  Receipt Date: 20211230
  Transmission Date: 20220304
  Serious: Yes (Other)
  Sender: FDA-Public Use
  Company Number: US-AMGEN-USASP2021198094

PATIENT
  Sex: Female

DRUGS (2)
  1. PROLIA [Suspect]
     Active Substance: DENOSUMAB
     Indication: Osteoporosis postmenopausal
     Dosage: 60 MILLIGRAM, Q6MO
     Route: 065
     Dates: start: 2015
  2. POTASSIUM [Concomitant]
     Active Substance: POTASSIUM
     Dosage: UNK

REACTIONS (28)
  - Hypothalamo-pituitary disorder [Unknown]
  - Diverticulitis [Unknown]
  - Tooth fracture [Not Recovered/Not Resolved]
  - Eye disorder [Unknown]
  - Palpitations [Unknown]
  - Dyspnoea [Unknown]
  - Migraine [Unknown]
  - Dysphonia [Unknown]
  - Cough [Unknown]
  - Rhinorrhoea [Unknown]
  - Dry skin [Unknown]
  - Restless legs syndrome [Unknown]
  - Mood altered [Unknown]
  - Immune system disorder [Unknown]
  - Blood parathyroid hormone increased [Unknown]
  - Adrenal disorder [Unknown]
  - Product dispensing error [Unknown]
  - Neck pain [Unknown]
  - Muscle spasms [Not Recovered/Not Resolved]
  - Cystitis [Unknown]
  - Depression [Unknown]
  - Back pain [Unknown]
  - Fatigue [Unknown]
  - Dyspepsia [Unknown]
  - Flatulence [Unknown]
  - Insomnia [Unknown]
  - Swelling face [Unknown]
  - Pain in extremity [Unknown]
